FAERS Safety Report 12108771 (Version 7)
Quarter: 2016Q3

REPORT INFORMATION
  Report Type: Report from Study
  Country: CA (occurrence: CA)
  Receive Date: 20160224
  Receipt Date: 20160728
  Transmission Date: 20161109
  Serious: Yes (Hospitalization, Other)
  Sender: FDA-Public Use
  Company Number: CA-BRISTOL-MYERS SQUIBB COMPANY-BMS-2015-091501

PATIENT
  Age: 20 Year
  Sex: Female

DRUGS (5)
  1. VITAMIN D                          /00107901/ [Concomitant]
     Active Substance: ERGOCALCIFEROL
     Indication: PRODUCT USED FOR UNKNOWN INDICATION
     Route: 065
  2. FOLIC ACID. [Concomitant]
     Active Substance: FOLIC ACID
     Indication: PRODUCT USED FOR UNKNOWN INDICATION
     Route: 065
  3. ABATACEPT [Suspect]
     Active Substance: ABATACEPT
     Indication: RHEUMATOID ARTHRITIS
     Dosage: 500 MG, Q4WK
     Route: 042
     Dates: start: 20151215
  4. CALCIUM [Concomitant]
     Active Substance: CALCIUM
     Indication: PRODUCT USED FOR UNKNOWN INDICATION
     Route: 065
  5. METHOTREXATE. [Concomitant]
     Active Substance: METHOTREXATE
     Indication: PRODUCT USED FOR UNKNOWN INDICATION
     Route: 065

REACTIONS (17)
  - Fibula fracture [Unknown]
  - Headache [Recovered/Resolved]
  - Weight decreased [Unknown]
  - Condition aggravated [Unknown]
  - External ear inflammation [Not Recovered/Not Resolved]
  - Blood pressure systolic decreased [Unknown]
  - Chondropathy [Unknown]
  - External ear pain [Unknown]
  - Hypoaesthesia [Unknown]
  - Erythema [Not Recovered/Not Resolved]
  - Pain in extremity [Unknown]
  - Postoperative wound infection [Unknown]
  - Arthritis [Unknown]
  - Surgery [Unknown]
  - Joint stiffness [Unknown]
  - Neck pain [Unknown]
  - Arthropathy [Unknown]

NARRATIVE: CASE EVENT DATE: 20151219
